FAERS Safety Report 8797447 (Version 2)
Quarter: 2012Q4

REPORT INFORMATION
  Report Type: 
  Country: US (occurrence: US)
  Receive Date: 20120920
  Receipt Date: 20121106
  Transmission Date: 20130627
  Serious: Yes (Other)
  Sender: FDA-Public Use
  Company Number: US-PFIZER INC-2012217284

PATIENT
  Age: 61 Year
  Sex: Female

DRUGS (1)
  1. CHANTIX [Suspect]
     Indication: SMOKING CESSATION THERAPY
     Dosage: UNK
     Route: 048
     Dates: start: 20120827

REACTIONS (4)
  - Hallucination [Recovered/Resolved]
  - Nightmare [Recovered/Resolved]
  - Heart rate increased [Recovered/Resolved]
  - Tobacco user [Unknown]
